FAERS Safety Report 6400445-4 (Version None)
Quarter: 2009Q4

REPORT INFORMATION
  Report Type: 
  Country: None (occurrence: None)
  Receive Date: 20091014
  Receipt Date: 20091001
  Transmission Date: 20100525
  Serious: Yes (Other)
  Sender: FDA-Public Use
  Company Number: CA-ELI_LILLY_AND_COMPANY-CA200910000929

PATIENT
  Age: 47 Year
  Sex: Male

DRUGS (8)
  1. FORTEO [Suspect]
     Indication: OSTEOPOROSIS
     Dosage: 20 UG, DAILY (1/D)
     Route: 058
     Dates: start: 20090416
  2. VALPROIC ACID [Concomitant]
     Dosage: UNK, EACH MORNING
  3. RISPERDAL [Concomitant]
  4. REACTINE [Concomitant]
  5. TRAZODONE [Concomitant]
  6. CALCIUM                                 /N/A/ [Concomitant]
  7. VITAMIN D [Concomitant]
  8. ATIVAN [Concomitant]

REACTIONS (3)
  - BLOOD ALKALINE PHOSPHATASE INCREASED [None]
  - BLOOD CREATINE INCREASED [None]
  - CONVULSION [None]
